FAERS Safety Report 8541682-2 (Version None)
Quarter: 2012Q3

REPORT INFORMATION
  Report Type: 
  Country: None (occurrence: None)
  Receive Date: 20120726
  Receipt Date: 20120719
  Transmission Date: 20120928
  Serious: Yes (Other)
  Sender: FDA-Public Use
  Company Number: PHHY2012US062733

PATIENT
  Age: 56 Year
  Sex: Female

DRUGS (3)
  1. HEART MEDICATION [Concomitant]
  2. ASPIRIN [Concomitant]
  3. ACETYLSALICYLIC ACID SRT [Suspect]
     Indication: HEADACHE
     Dosage: 2 DF, UNK
     Route: 048
     Dates: start: 19920101

REACTIONS (7)
  - INCORRECT DRUG ADMINISTRATION DURATION [None]
  - TINNITUS [None]
  - DRUG INEFFECTIVE [None]
  - MYOCARDIAL INFARCTION [None]
  - ULCER [None]
  - ABDOMINAL DISCOMFORT [None]
  - DRUG HYPERSENSITIVITY [None]
